FAERS Safety Report 16487808 (Version 1)
Quarter: 2019Q3

REPORT INFORMATION
  Report Type: Spontaneous
  Country: US (occurrence: US)
  Receive Date: 20190626
  Receipt Date: 20190626
  Transmission Date: 20191004
  Serious: No
  Sender: FDA-Public Use
  Company Number: None

PATIENT
  Age: 22 Year
  Weight: 40.5 kg

DRUGS (3)
  1. MULTIVITAMIN [Concomitant]
     Active Substance: VITAMINS
  2. QUETIAPINE. [Suspect]
     Active Substance: QUETIAPINE
     Indication: BIPOLAR DISORDER
     Dosage: ?          QUANTITY:1 TABLET(S);?
     Route: 048
  3. QUETIAPINE. [Suspect]
     Active Substance: QUETIAPINE
     Indication: PSYCHOTIC SYMPTOM
     Dosage: ?          QUANTITY:1 TABLET(S);?
     Route: 048

REACTIONS (19)
  - Confusional state [None]
  - Influenza like illness [None]
  - Pyrexia [None]
  - Depression [None]
  - Anxiety [None]
  - Movement disorder [None]
  - Tachycardia [None]
  - Dizziness [None]
  - Abnormal dreams [None]
  - Pain [None]
  - Fibromyalgia [None]
  - Sedation [None]
  - Condition aggravated [None]
  - Panic reaction [None]
  - Hallucination, visual [None]
  - Patient isolation [None]
  - Suicide attempt [None]
  - Hypotension [None]
  - Boredom [None]

NARRATIVE: CASE EVENT DATE: 20160320
